FAERS Safety Report 14999013 (Version 1)
Quarter: 2018Q2

REPORT INFORMATION
  Report Type: Report from Study
  Country: IT (occurrence: IT)
  Receive Date: 20180612
  Receipt Date: 20180612
  Transmission Date: 20180711
  Serious: Yes (Hospitalization)
  Sender: FDA-Public Use
  Company Number: IT-TEVA-2018-IT-904238

PATIENT
  Age: 78 Year
  Sex: Female

DRUGS (3)
  1. WARFARIN [Interacting]
     Active Substance: WARFARIN
     Indication: ANTICOAGULANT THERAPY
     Route: 065
  2. INACTIVATED, SPLIT-VIRUS INFLUENZA VACCINE [Concomitant]
     Indication: IMMUNISATION
     Route: 065
  3. CLOPIDOGREL [Suspect]
     Active Substance: CLOPIDOGREL BISULFATE
     Indication: ANTICOAGULANT THERAPY
     Route: 065

REACTIONS (6)
  - Ecchymosis [Unknown]
  - Pain in extremity [Unknown]
  - Haematoma [Unknown]
  - Peripheral swelling [Unknown]
  - Drug interaction [Unknown]
  - Anaemia [Unknown]
